FAERS Safety Report 4565565-8 (Version None)
Quarter: 2005Q1

REPORT INFORMATION
  Report Type: 
  Country: None (occurrence: None)
  Receive Date: 20050125
  Receipt Date: 20050125
  Transmission Date: 20050727
  Serious: Yes (Hospitalization)
  Sender: FDA-Public Use
  Company Number: None

PATIENT
  Sex: Female
  Weight: 27.5 kg

DRUGS (1)
  1. ELOXATIN [Suspect]
     Indication: HEPATOBLASTOMA
     Dosage: 100MG   ONCE   INTRAVENOUS
     Route: 042

REACTIONS (4)
  - CHEST PAIN [None]
  - CHILLS [None]
  - PYREXIA [None]
  - VOMITING [None]
